FAERS Safety Report 6804700-5 (Version None)
Quarter: 2010Q2

REPORT INFORMATION
  Report Type: 
  Country: None (occurrence: None)
  Receive Date: 20100628
  Receipt Date: 20070710
  Transmission Date: 20101027
  Serious: No
  Sender: FDA-Public Use
  Company Number: US-PFIZER INC-2007030924

PATIENT
  Sex: Female
  Weight: 71.363 kg

DRUGS (4)
  1. XALATAN [Suspect]
     Indication: GLAUCOMA
     Route: 031
  2. LISINOPRIL [Concomitant]
  3. PRAVACHOL [Concomitant]
  4. COSOPT [Concomitant]

REACTIONS (1)
  - DERMATITIS [None]
